FAERS Safety Report 22179390 (Version 1)
Quarter: 2023Q2

REPORT INFORMATION
  Report Type: Spontaneous
  Country: GB (occurrence: GB)
  Receive Date: 20230406
  Receipt Date: 20230406
  Transmission Date: 20230722
  Serious: No
  Sender: FDA-Public Use
  Company Number: None

PATIENT
  Age: 36 Year
  Sex: Female
  Weight: 96 kg

DRUGS (7)
  1. IBUPROFEN [Suspect]
     Active Substance: IBUPROFEN
     Indication: Ill-defined disorder
     Dosage: UNK, (PINK TABLETS)
     Route: 065
     Dates: start: 20230131
  2. BECLOMETHASONE DIPROPIONATE [Concomitant]
     Active Substance: BECLOMETHASONE DIPROPIONATE
     Indication: Ill-defined disorder
     Dosage: UNK, BID (ONE DOSE REGULARLY)
     Dates: start: 20221122
  3. DOXYCYCLINE [Concomitant]
     Active Substance: DOXYCYCLINE
     Indication: Ill-defined disorder
     Dosage: UNK, (TWO NOW THEN ONE DAILY)
     Route: 065
     Dates: start: 20230103, end: 20230110
  4. FEXOFENADINE [Concomitant]
     Active Substance: FEXOFENADINE HYDROCHLORIDE
     Indication: Ill-defined disorder
     Dosage: UNK, (TAKE ONE TABLET ONCE A DAY BEFORE FOOD FOR ITCHING AS DIRECTED)
     Route: 065
     Dates: start: 20230103, end: 20230131
  5. BECLOMETHASONE\FORMOTEROL [Concomitant]
     Active Substance: BECLOMETHASONE\FORMOTEROL
     Indication: Ill-defined disorder
     Dosage: BECLOMETASONE 200 MICROGRAMS + FORMOTEROL 6 MICROGRAMS. INHALE 2 DOSES X 2 A DAY. MAX 4 PUFFS DAILY.
     Dates: start: 20230123
  6. PREDNISOLONE [Concomitant]
     Active Substance: PREDNISOLONE
     Indication: Ill-defined disorder
     Dosage: UNK, ASTHMA RESCUE MEDICATION. (TAKE 8 TABLETS 40MG ONCE A DAY FOR 7 DAYS. INFORM YOUR SURGERY ON US
     Route: 065
     Dates: start: 20230123, end: 20230128
  7. ALBUTEROL [Concomitant]
     Active Substance: ALBUTEROL
     Indication: Ill-defined disorder
     Dosage: UNK, PRN (2 DOSES)
     Dates: start: 20221122, end: 20221220

REACTIONS (1)
  - Eye swelling [Recovered/Resolved]

NARRATIVE: CASE EVENT DATE: 20230131
